FAERS Safety Report 4684255-4 (Version None)
Quarter: 2005Q2

REPORT INFORMATION
  Report Type: 
  Country: None (occurrence: None)
  Receive Date: 20050531
  Receipt Date: 20050404
  Transmission Date: 20051028
  Serious: Yes (Hospitalization)
  Sender: FDA-Public Use
  Company Number: US_0411107733

PATIENT
  Age: 45 Year
  Sex: Female
  Weight: 60 kg

DRUGS (4)
  1. ZYPREXA [Suspect]
     Indication: ANXIETY
     Dosage: 5 MG
     Dates: start: 20021125, end: 20040217
  2. CELEXA [Concomitant]
  3. ZOLOFT [Concomitant]
  4. ABILIFY [Concomitant]

REACTIONS (3)
  - DIABETES MELLITUS [None]
  - GLUCOSE URINE PRESENT [None]
  - PANCREATITIS [None]
